FAERS Safety Report 24965194 (Version 1)
Quarter: 2025Q1

REPORT INFORMATION
  Report Type: Spontaneous
  Country: US (occurrence: None)
  Receive Date: 20250212
  Receipt Date: 20250212
  Transmission Date: 20250408
  Serious: Yes (Other)
  Sender: FDA-CTU
  Company Number: None

PATIENT
  Age: 52 Year
  Sex: Female

DRUGS (1)
  1. RINVOQ [Suspect]
     Active Substance: UPADACITINIB
     Dates: start: 20240905, end: 20250212

REACTIONS (6)
  - Therapy interrupted [None]
  - Drug ineffective [None]
  - Acne cystic [None]
  - Weight increased [None]
  - Rhinorrhoea [None]
  - Chapped lips [None]

NARRATIVE: CASE EVENT DATE: 20250212
